FAERS Safety Report 26059414 (Version 1)
Quarter: 2025Q4

REPORT INFORMATION
  Report Type: Spontaneous
  Country: US (occurrence: US)
  Receive Date: 20251118
  Receipt Date: 20251118
  Transmission Date: 20260117
  Serious: No
  Sender: UNKNOWN
  Company Number: US-NantWorks-2025-US-NANT-00059

PATIENT
  Age: 79 Year
  Sex: Female
  Weight: 68.04 kg

DRUGS (2)
  1. ANKTIVA [Suspect]
     Active Substance: NOGAPENDEKIN ALFA INBAKICEPT-PMLN
     Indication: Bladder cancer
     Dosage: THERAPY START DATE
     Route: 043
     Dates: start: 20250805
  2. ANKTIVA [Suspect]
     Active Substance: NOGAPENDEKIN ALFA INBAKICEPT-PMLN
     Dosage: DATE OF LAST DOSE PRIOR TO EVENT ONSET (400 MCG, 2 DOSES RECEIVED)
     Route: 043
     Dates: start: 20250812

REACTIONS (5)
  - Abdominal pain lower [Recovered/Resolved]
  - Bladder pain [Recovered/Resolved]
  - Abdominal discomfort [Recovered/Resolved]
  - Asthenia [Recovered/Resolved]
  - Malaise [Recovered/Resolved]

NARRATIVE: CASE EVENT DATE: 20250812
